FAERS Safety Report 16400764 (Version 1)
Quarter: 2019Q2

REPORT INFORMATION
  Report Type: Spontaneous
  Country: CZ (occurrence: CZ)
  Receive Date: 20190606
  Receipt Date: 20190606
  Transmission Date: 20190711
  Serious: Yes (Hospitalization, Other)
  Sender: FDA-Public Use
  Company Number: CZ-MYLANLABS-2019M1053225

PATIENT
  Sex: Female

DRUGS (3)
  1. IMATINIB. [Suspect]
     Active Substance: IMATINIB MESYLATE
     Dosage: 800 MILLIGRAM, QD (400 MG, BID )
     Dates: start: 20121002, end: 20130701
  2. IMATINIB. [Suspect]
     Active Substance: IMATINIB MESYLATE
     Indication: GASTROINTESTINAL STROMAL TUMOUR
     Dosage: 400MG, QD
     Route: 065
     Dates: start: 20110307, end: 20120327
  3. IMATINIB. [Suspect]
     Active Substance: IMATINIB MESYLATE
     Dosage: 800 MILLIGRAM, QD (400 MG, BID )
     Dates: start: 20120327

REACTIONS (6)
  - Malignant neoplasm progression [Recovering/Resolving]
  - Metastases to peritoneum [Unknown]
  - Metastases to liver [Unknown]
  - Gastrointestinal stromal tumour [Recovering/Resolving]
  - Ileus [Recovered/Resolved]
  - Ascites [Unknown]

NARRATIVE: CASE EVENT DATE: 2012
